FAERS Safety Report 4352904-6 (Version None)
Quarter: 2004Q2

REPORT INFORMATION
  Report Type: 
  Country: None (occurrence: None)
  Receive Date: 20040428
  Receipt Date: 20040412
  Transmission Date: 20050107
  Serious: Yes (Life-Threatening)
  Sender: FDA-Public Use
  Company Number: WAES 0404USA01626

PATIENT
  Sex: Male

DRUGS (5)
  1. COSMEGEN [Suspect]
     Indication: GESTATIONAL TROPHOBLASTIC TUMOUR
     Route: 042
  2. CYCLOPHOSPHAMIDE [Concomitant]
  3. ETOPOSIDE [Concomitant]
  4. METHOTREXATE [Concomitant]
  5. VINCRISTINE SULFATE [Concomitant]

REACTIONS (2)
  - HEPATITIS B [None]
  - PREGNANCY [None]
